FAERS Safety Report 21272145 (Version 2)
Quarter: 2022Q4

REPORT INFORMATION
  Report Type: Report from Study
  Country: DE (occurrence: DE)
  Receive Date: 20220830
  Receipt Date: 20221005
  Transmission Date: 20230113
  Serious: Yes (Hospitalization)
  Sender: FDA-Public Use
  Company Number: DE-NOVPHSZ-PHHY2018DE078011

PATIENT
  Sex: Female

DRUGS (20)
  1. UNSPECIFIED INGREDIENT [Suspect]
     Active Substance: UNSPECIFIED INGREDIENT
     Dosage: NO DOSE GIVEN
  2. METHOTREXATE SODIUM [Suspect]
     Active Substance: METHOTREXATE SODIUM
     Indication: Rheumatoid arthritis
     Dosage: 5 UNK
     Dates: start: 20170114
  3. METHOTREXATE SODIUM [Suspect]
     Active Substance: METHOTREXATE SODIUM
     Dosage: 5 MG
     Dates: start: 20170414
  4. METHOTREXATE SODIUM [Suspect]
     Active Substance: METHOTREXATE SODIUM
     Dosage: 20 UNK
     Dates: start: 20170715
  5. METHOTREXATE SODIUM [Suspect]
     Active Substance: METHOTREXATE SODIUM
     Dosage: 15 UNK
     Dates: start: 20180707
  6. METHOTREXATE SODIUM [Suspect]
     Active Substance: METHOTREXATE SODIUM
     Dosage: 10 UNK
     Dates: start: 20190216
  7. METHOTREXATE SODIUM [Suspect]
     Active Substance: METHOTREXATE SODIUM
     Dosage: 15 UNK
     Dates: start: 20190727
  8. METHOTREXATE SODIUM [Suspect]
     Active Substance: METHOTREXATE SODIUM
     Dosage: 15 UNK
     Dates: start: 20200207
  9. METHOTREXATE SODIUM [Suspect]
     Active Substance: METHOTREXATE SODIUM
     Dosage: 15 UNK
     Dates: start: 20200808
  10. METHOTREXATE SODIUM [Suspect]
     Active Substance: METHOTREXATE SODIUM
     Dosage: 5 UNK
     Dates: start: 20210123
  11. METHOTREXATE SODIUM [Suspect]
     Active Substance: METHOTREXATE SODIUM
     Dosage: 5 UNK
     Dates: start: 20210710
  12. SULFASALAZINE [Suspect]
     Active Substance: SULFASALAZINE
     Indication: Rheumatoid arthritis
     Dosage: 2000 MG
     Dates: start: 20170714
  13. SULFASALAZINE [Suspect]
     Active Substance: SULFASALAZINE
     Dosage: 2000 UNK
     Dates: start: 20170414
  14. SULFASALAZINE [Suspect]
     Active Substance: SULFASALAZINE
     Dosage: 2000 UNK
     Dates: start: 20170715
  15. SULFASALAZINE [Suspect]
     Active Substance: SULFASALAZINE
     Dosage: 2000 UNK
     Dates: start: 20170114
  16. LEFLUNOMIDE [Suspect]
     Active Substance: LEFLUNOMIDE
     Dosage: 20 UNK
     Dates: start: 20170715
  17. LEFLUNOMIDE [Suspect]
     Active Substance: LEFLUNOMIDE
     Dosage: 20 UNK
     Dates: start: 20180113
  18. LEFLUNOMIDE [Suspect]
     Active Substance: LEFLUNOMIDE
     Dosage: 20 UNK
     Dates: start: 20180707
  19. LEFLUNOMIDE [Suspect]
     Active Substance: LEFLUNOMIDE
     Dosage: 20 MG
     Dates: start: 20210123
  20. LEFLUNOMIDE [Suspect]
     Active Substance: LEFLUNOMIDE
     Dosage: 20 UNK
     Dates: start: 20210710

REACTIONS (3)
  - Renal failure [Not Recovered/Not Resolved]
  - Duodenal ulcer haemorrhage [Recovered/Resolved]
  - Dyspepsia [Unknown]

NARRATIVE: CASE EVENT DATE: 20170615
